FAERS Safety Report 13531161 (Version 1)
Quarter: 2017Q2

REPORT INFORMATION
  Report Type: Spontaneous
  Country: US (occurrence: US)
  Receive Date: 20170510
  Receipt Date: 20170510
  Transmission Date: 20170830
  Serious: No
  Sender: FDA-Public Use
  Company Number: None

PATIENT
  Age: 59 Year
  Sex: Female
  Weight: 74.84 kg

DRUGS (8)
  1. MIRTAZAPINE ORALLY DISINTEGRATING TABLETS [Suspect]
     Active Substance: MIRTAZAPINE
     Indication: DEPRESSION
     Dosage: QUANTITY - 1 DOSE AT PM (NIGHT)?
     Route: 048
     Dates: start: 20170315, end: 20170319
  2. TYLENOL [Concomitant]
     Active Substance: ACETAMINOPHEN
  3. ADAVAN [Concomitant]
     Active Substance: UNSPECIFIED INGREDIENT
  4. MIRTAZAPINE ORALLY DISINTEGRATING TABLETS [Suspect]
     Active Substance: MIRTAZAPINE
     Indication: SLEEP DISORDER
     Dosage: QUANTITY - 1 DOSE AT PM (NIGHT)?
     Route: 048
     Dates: start: 20170315, end: 20170319
  5. MIRTAZAPINE ORALLY DISINTEGRATING TABLETS [Suspect]
     Active Substance: MIRTAZAPINE
     Indication: ABDOMINAL DISCOMFORT
     Dosage: QUANTITY - 1 DOSE AT PM (NIGHT)?
     Route: 048
     Dates: start: 20170315, end: 20170319
  6. MAGNESIUM CITRATE. [Concomitant]
     Active Substance: MAGNESIUM CITRATE
  7. MEDS FOR RESTLESS LEGS [Concomitant]
  8. VITAMINS [Concomitant]
     Active Substance: VITAMINS

REACTIONS (4)
  - Blister [None]
  - Chills [None]
  - Malaise [None]
  - Dyspnoea [None]

NARRATIVE: CASE EVENT DATE: 20170315
